FAERS Safety Report 8042108-8 (Version None)
Quarter: 2012Q1

REPORT INFORMATION
  Report Type: 
  Country: None (occurrence: None)
  Receive Date: 20120112
  Receipt Date: 20120106
  Transmission Date: 20120608
  Serious: Yes (Death)
  Sender: FDA-Public Use
  Company Number: MY-CELGENEUS-101-21880-12010684

PATIENT
  Age: 55 Year
  Sex: Female

DRUGS (1)
  1. REVLIMID [Suspect]
     Dosage: 25 MILLIGRAM
     Route: 048

REACTIONS (1)
  - DEATH [None]
